FAERS Safety Report 14939455 (Version 1)
Quarter: 2018Q2

REPORT INFORMATION
  Report Type: Spontaneous
  Country: US (occurrence: US)
  Receive Date: 20180525
  Receipt Date: 20180525
  Transmission Date: 20180711
  Serious: No
  Sender: FDA-Public Use
  Company Number: US-PFIZER INC-2018209244

PATIENT
  Sex: Female

DRUGS (1)
  1. MYLOTARG [Suspect]
     Active Substance: GEMTUZUMAB OZOGAMICIN
     Indication: ACUTE MYELOID LEUKAEMIA
     Dosage: UNK, (MYLOTARG WITH 7/3 DAY 1 4 7 DAY 1)

REACTIONS (3)
  - Pyrexia [Unknown]
  - Infusion related reaction [Unknown]
  - Tremor [Unknown]
